FAERS Safety Report 17782497 (Version 1)
Quarter: 2020Q2

REPORT INFORMATION
  Report Type: Spontaneous
  Country: DE (occurrence: DE)
  Receive Date: 20200514
  Receipt Date: 20200514
  Transmission Date: 20200714
  Serious: Yes (Hospitalization)
  Sender: FDA-Public Use
  Company Number: DE-TEVA-2020-DE-1234583

PATIENT
  Age: 86 Year
  Sex: Female

DRUGS (10)
  1. PROPIVERIN [Concomitant]
     Active Substance: PROPIVERINE
     Dosage: 30 MILLIGRAM DAILY; 0-0-1-0
  2. PANTOPRAZOL [Concomitant]
     Active Substance: PANTOPRAZOLE SODIUM
     Dosage: 40 MILLIGRAM DAILY; 1-0-0-0
  3. SIMVASTATIN. [Concomitant]
     Active Substance: SIMVASTATIN
     Dosage: 20 MILLIGRAM DAILY; 0-0-1-0
  4. BISOPROLOL [Concomitant]
     Active Substance: BISOPROLOL
     Dosage: 1-0.5-0.5-0
  5. APIXABAN [Concomitant]
     Active Substance: APIXABAN
     Dosage: 5 MILLIGRAM DAILY; 1-0-1-0
  6. TORASEMID [Suspect]
     Active Substance: TORSEMIDE
     Dosage: 40 MILLIGRAM DAILY; 2-0-0-0
  7. XIPAMIDE [Suspect]
     Active Substance: XIPAMIDE
     Dosage: 20 MILLIGRAM DAILY; 1-0-0-0
  8. RAMIPRIL. [Concomitant]
     Active Substance: RAMIPRIL
     Dosage: .5 DOSAGE FORMS DAILY; 2.5 MG, 0.5-0-0-0
  9. CALCIVIT D 600MG/400I.E. [Concomitant]
     Dosage: 2 DOSAGE FORMS DAILY; 600 | 400 MG / IU, 1-0-1-0
  10. ARLEVERT [Suspect]
     Active Substance: CINNARIZINE\DIMENHYDRINATE
     Dosage: 20 | 40 MG, DISCONTINUED

REACTIONS (7)
  - Dehydration [Unknown]
  - Arrhythmia [Unknown]
  - Confusional state [Unknown]
  - Dizziness [Unknown]
  - Fall [Unknown]
  - General physical health deterioration [Unknown]
  - Tachycardia [Unknown]
